FAERS Safety Report 8472575-7 (Version None)
Quarter: 2012Q2

REPORT INFORMATION
  Report Type: 
  Country: None (occurrence: None)
  Receive Date: 20120627
  Receipt Date: 20110712
  Transmission Date: 20120825
  Serious: No
  Sender: FDA-Public Use
  Company Number: US-AMGEN-KDL346267

PATIENT
  Age: 83 Year
  Sex: Female

DRUGS (19)
  1. ROTOCAL [Concomitant]
  2. ALISKIREN [Concomitant]
     Dosage: 100 MG, QD
     Route: 048
  3. PANADEINE CO [Concomitant]
  4. COLCHICINE [Concomitant]
  5. ACETYLSALICYLIC ACID SRT [Concomitant]
     Dosage: 81 MG, QD
  6. CARVEDILOL [Concomitant]
     Dosage: 8 MG, QD
     Route: 048
  7. PRIMIDONE [Concomitant]
     Dosage: 50 MG, BID
     Route: 048
  8. CALCITRIOL [Concomitant]
  9. BUMETANIDE [Concomitant]
     Dosage: UNK UNK, PRN
     Route: 048
  10. XALATAN [Concomitant]
     Dosage: UNK UNK, UNK
  11. DORZOLAMIDE HYDROCHLORIDE AND TIMOLOL MALEATE [Concomitant]
     Dosage: UNK UNK, UNK
  12. PROCRIT [Suspect]
     Indication: ANAEMIA
     Dosage: 20000 IU, Q4WK
     Dates: start: 20040101, end: 20090512
  13. IRBESARTAN [Concomitant]
     Dosage: 300 MG, UNK
  14. FOLIC ACID [Concomitant]
  15. DIAZEPAM [Concomitant]
     Dosage: 5 MG, UNK
  16. HYDRALAZINE HYDROCHLORIDE [Concomitant]
  17. FERROUS SULFATE TAB [Concomitant]
  18. ATORVASTATIN CALCIUM [Concomitant]
  19. ALLOPURINOL [Concomitant]

REACTIONS (10)
  - RASH PRURITIC [None]
  - LYMPHOEDEMA [None]
  - CONSTIPATION [None]
  - OEDEMA PERIPHERAL [None]
  - IRRITABILITY [None]
  - ALOPECIA [None]
  - HYPERTENSION [None]
  - MENTAL DISORDER [None]
  - PRURITUS [None]
  - THERAPEUTIC RESPONSE DECREASED [None]
